FAERS Safety Report 18445486 (Version 16)
Quarter: 2023Q2

REPORT INFORMATION
  Report Type: Report from Study
  Country: CA (occurrence: CA)
  Receive Date: 20201030
  Receipt Date: 20230630
  Transmission Date: 20230721
  Serious: Yes (Hospitalization, Other)
  Sender: FDA-Public Use
  Company Number: CA-TAKEDA-CA202016296

PATIENT
  Age: 19 Year
  Sex: Female

DRUGS (38)
  1. ICATIBANT [Suspect]
     Active Substance: ICATIBANT ACETATE
     Indication: Hereditary angioedema with normal C1 esterase inhibitor
     Dosage: 30 MILLIGRAM
     Route: 065
     Dates: start: 20200511
  2. ICATIBANT [Suspect]
     Active Substance: ICATIBANT ACETATE
     Indication: Hereditary angioedema with normal C1 esterase inhibitor
     Dosage: 30 MILLIGRAM
     Route: 065
     Dates: start: 20200511
  3. ICATIBANT [Suspect]
     Active Substance: ICATIBANT ACETATE
     Dosage: 30 MILLIGRAM
     Route: 065
  4. ICATIBANT [Suspect]
     Active Substance: ICATIBANT ACETATE
     Dosage: 30 MILLIGRAM
     Route: 065
  5. ICATIBANT [Suspect]
     Active Substance: ICATIBANT ACETATE
     Dosage: 30 MILLIGRAM
     Route: 065
  6. ICATIBANT [Suspect]
     Active Substance: ICATIBANT ACETATE
     Dosage: 30 MILLIGRAM
     Route: 065
  7. ICATIBANT [Suspect]
     Active Substance: ICATIBANT ACETATE
     Dosage: 30 MILLIGRAM
     Route: 065
  8. ICATIBANT [Suspect]
     Active Substance: ICATIBANT ACETATE
     Dosage: 30 MILLIGRAM
     Route: 065
  9. ICATIBANT [Suspect]
     Active Substance: ICATIBANT ACETATE
     Dosage: UNK
     Route: 065
  10. ICATIBANT [Suspect]
     Active Substance: ICATIBANT ACETATE
     Dosage: UNK
     Route: 065
  11. ICATIBANT [Suspect]
     Active Substance: ICATIBANT ACETATE
     Dosage: 30 MILLIGRAM
     Route: 065
  12. ICATIBANT [Suspect]
     Active Substance: ICATIBANT ACETATE
     Dosage: 30 MILLIGRAM
     Route: 065
  13. ICATIBANT [Suspect]
     Active Substance: ICATIBANT ACETATE
     Dosage: 30 MILLIGRAM
     Route: 058
  14. ICATIBANT [Suspect]
     Active Substance: ICATIBANT ACETATE
     Dosage: 30 MILLIGRAM
     Route: 058
  15. ICATIBANT [Suspect]
     Active Substance: ICATIBANT ACETATE
     Dosage: UNK
     Route: 050
  16. ICATIBANT [Suspect]
     Active Substance: ICATIBANT ACETATE
     Dosage: UNK
     Route: 050
  17. ICATIBANT [Suspect]
     Active Substance: ICATIBANT ACETATE
     Dosage: 30 MILLIGRAM
     Route: 058
  18. ICATIBANT [Suspect]
     Active Substance: ICATIBANT ACETATE
     Dosage: 30 MILLIGRAM
     Route: 058
  19. ICATIBANT [Suspect]
     Active Substance: ICATIBANT ACETATE
     Dosage: UNK
     Route: 050
  20. ICATIBANT [Suspect]
     Active Substance: ICATIBANT ACETATE
     Dosage: UNK
     Route: 050
  21. ICATIBANT [Suspect]
     Active Substance: ICATIBANT ACETATE
     Dosage: UNK
     Route: 058
  22. ICATIBANT [Suspect]
     Active Substance: ICATIBANT ACETATE
     Dosage: UNK
     Route: 058
  23. KEPPRA [Suspect]
     Active Substance: LEVETIRACETAM
     Indication: Product used for unknown indication
     Dosage: UNK
     Route: 065
  24. BRIVARACETAM [Suspect]
     Active Substance: BRIVARACETAM
     Indication: Seizure
     Dosage: 25 MILLIGRAM, BID
     Route: 065
  25. LAMOTRIGINE [Suspect]
     Active Substance: LAMOTRIGINE
     Indication: Seizure
     Dosage: 25 MILLIGRAM
     Route: 065
  26. XOLAIR [Concomitant]
     Active Substance: OMALIZUMAB
     Indication: Product used for unknown indication
     Dosage: 300 MILLIGRAM, MONTHLY
     Route: 065
  27. XOLAIR [Concomitant]
     Active Substance: OMALIZUMAB
     Dosage: 300 MILLIGRAM, Q6WEEKS
     Route: 065
  28. TRANEXAMIC ACID [Concomitant]
     Active Substance: TRANEXAMIC ACID
     Indication: Product used for unknown indication
     Dosage: 500 MILLIGRAM, BID
     Route: 065
  29. SINGULAIR [Concomitant]
     Active Substance: MONTELUKAST SODIUM
     Indication: Product used for unknown indication
     Dosage: 10 MILLIGRAM, QD
     Route: 065
  30. RUPATADINE FUMARATE [Concomitant]
     Active Substance: RUPATADINE FUMARATE
     Indication: Product used for unknown indication
     Dosage: 10 MILLIGRAM, BID
     Route: 065
  31. PLAQUENIL [Concomitant]
     Active Substance: HYDROXYCHLOROQUINE SULFATE
     Indication: Product used for unknown indication
     Dosage: 400 MILLIGRAM, QD
     Route: 065
  32. FLUTICASONE FUROATE [Concomitant]
     Active Substance: FLUTICASONE FUROATE
     Indication: Product used for unknown indication
     Dosage: 2 DOSAGE FORM, QD
     Route: 065
  33. AMOXICILLIN [Concomitant]
     Active Substance: AMOXICILLIN
     Indication: Product used for unknown indication
     Dosage: 500 MILLIGRAM, QD
     Route: 065
     Dates: start: 20210504
  34. LEVETIRACETAM [Concomitant]
     Active Substance: LEVETIRACETAM
     Dosage: 500 MILLIGRAM, QD
     Route: 065
  35. LEVETIRACETAM [Concomitant]
     Active Substance: LEVETIRACETAM
     Dosage: 250 MILLIGRAM, QD
     Route: 065
  36. RUPATADINE [Concomitant]
     Active Substance: RUPATADINE
     Dosage: 10 MILLIGRAM, BID
     Route: 065
  37. ESCITALOPRAM [Concomitant]
     Active Substance: ESCITALOPRAM OXALATE
     Dosage: 15 MILLIGRAM
     Route: 048
  38. PROPRANOLOL [Concomitant]
     Active Substance: PROPRANOLOL HYDROCHLORIDE
     Dosage: 10 MILLIGRAM, QD
     Route: 048

REACTIONS (14)
  - Gastrointestinal disorder [Unknown]
  - Seizure [Recovered/Resolved]
  - Toothache [Unknown]
  - Chronic obstructive pulmonary disease [Unknown]
  - Affective disorder [Unknown]
  - Pharyngitis [Not Recovered/Not Resolved]
  - Product availability issue [Not Recovered/Not Resolved]
  - Drug eruption [Unknown]
  - Fatigue [Not Recovered/Not Resolved]
  - Asthenia [Not Recovered/Not Resolved]
  - Pruritus [Unknown]
  - Injection site pain [Recovered/Resolved]
  - Urticaria [Unknown]
  - Off label use [Unknown]

NARRATIVE: CASE EVENT DATE: 20200511
